FAERS Safety Report 17079635 (Version 2)
Quarter: 2019Q4

REPORT INFORMATION
  Report Type: Spontaneous
  Country: PL (occurrence: PL)
  Receive Date: 20191127
  Receipt Date: 20191202
  Transmission Date: 20200122
  Serious: Yes (Hospitalization)
  Sender: FDA-Public Use
  Company Number: PL-AUROBINDO-AUR-APL-2019-075061

PATIENT
  Age: 66 Year
  Sex: Female

DRUGS (8)
  1. INSULIN [Suspect]
     Active Substance: INSULIN NOS
     Dosage: 12 U (MORNING)
     Route: 065
  2. INSULIN [Suspect]
     Active Substance: INSULIN NOS
     Dosage: 10 MICROLITER (BEFORE BREAKFAST)
     Route: 042
  3. METFORMIN [Suspect]
     Active Substance: METFORMIN HYDROCHLORIDE
     Indication: TYPE 2 DIABETES MELLITUS
     Dosage: 1000 MILLIGRAM, 3 TIMES A DAY (3G/24H)
     Route: 048
  4. INSULIN [Suspect]
     Active Substance: INSULIN NOS
     Indication: TYPE 2 DIABETES MELLITUS
     Dosage: 6 MICROLITER (BEFORE DINNER)
     Route: 042
  5. INSULIN [Suspect]
     Active Substance: INSULIN NOS
     Dosage: 6 U (BEFORE DINNER)
     Route: 042
  6. GLIMEPIRIDE. [Suspect]
     Active Substance: GLIMEPIRIDE
     Indication: TYPE 2 DIABETES MELLITUS
     Dosage: 6 MILLIGRAM, ONCE A DAY
     Route: 065
  7. INSULIN [Suspect]
     Active Substance: INSULIN NOS
     Dosage: 10 U (BEFORE BREAKFAST)
     Route: 042
  8. INSULIN [Suspect]
     Active Substance: INSULIN NOS
     Dosage: 10 U (BEFORE DINNER)
     Route: 065

REACTIONS (3)
  - Glycosylated haemoglobin abnormal [Recovered/Resolved]
  - Hyperglycaemia [Recovered/Resolved]
  - Drug ineffective [Unknown]
